FAERS Safety Report 25786849 (Version 1)
Quarter: 2025Q3

REPORT INFORMATION
  Report Type: Spontaneous
  Country: US (occurrence: US)
  Receive Date: 20250910
  Receipt Date: 20250910
  Transmission Date: 20251021
  Serious: Yes (Life-Threatening, Hospitalization, Other)
  Sender: CHATTEM
  Company Number: US-SA-2020SA229618

PATIENT
  Sex: Female

DRUGS (8)
  1. HYDROCORTISONE [Suspect]
     Active Substance: HYDROCORTISONE
     Indication: Juvenile idiopathic arthritis
     Dosage: 30 MG, QD (20 MG IN THE MORNING AND 10 MG IN AFTERNOON)
     Route: 065
  2. HYDROCORTISONE [Suspect]
     Active Substance: HYDROCORTISONE
     Dosage: IN THE AFTERNOON
  3. HYDROCORTISONE [Suspect]
     Active Substance: HYDROCORTISONE
     Dosage: EVERY MORNING
  4. HYDROXYCHLOROQUINE [Suspect]
     Active Substance: HYDROXYCHLOROQUINE
     Indication: Juvenile idiopathic arthritis
     Dosage: 200 MG, BID, PROLONGED HIATUS
     Route: 065
  5. HYDROXYCHLOROQUINE [Suspect]
     Active Substance: HYDROXYCHLOROQUINE
  6. HYDROXYCHLOROQUINE [Suspect]
     Active Substance: HYDROXYCHLOROQUINE
  7. CORTICOSTEROID NOS [Suspect]
     Active Substance: CORTICOSTEROID NOS
     Indication: Juvenile idiopathic arthritis
     Route: 065
  8. ANAKINRA [Concomitant]
     Active Substance: ANAKINRA
     Indication: Juvenile idiopathic arthritis
     Dosage: 100 MG, QD
     Route: 058

REACTIONS (19)
  - Respiratory failure [Recovered/Resolved]
  - Respiratory acidosis [Recovered/Resolved]
  - Hypercapnia [Recovered/Resolved]
  - Pneumothorax [Recovered/Resolved]
  - Diaphragm muscle weakness [Recovered/Resolved]
  - Muscle injury [Recovered/Resolved]
  - Lung opacity [Recovered/Resolved]
  - Hypoxia [Recovered/Resolved]
  - Encephalopathy [Recovered/Resolved]
  - Myopathy [Recovered/Resolved]
  - Muscular weakness [Recovered/Resolved]
  - Respiratory failure [Recovered/Resolved]
  - Encephalomalacia [Recovered/Resolved]
  - Toxicity to various agents [Recovered/Resolved]
  - Fall [Recovered/Resolved]
  - Cervical vertebral fracture [Recovered/Resolved]
  - Subarachnoid haemorrhage [Recovered/Resolved]
  - Tibia fracture [Recovered/Resolved]
  - Embolic stroke [Recovered/Resolved]
